FAERS Safety Report 9267474 (Version 1)
Quarter: 2013Q2

REPORT INFORMATION
  Report Type: Spontaneous
  Country: US (occurrence: US)
  Receive Date: 20130502
  Receipt Date: 20130502
  Transmission Date: 20140414
  Serious: Yes (Other)
  Sender: FDA-Public Use
  Company Number: US-GLAXOSMITHKLINE-A0889977A

PATIENT
  Age: 43 Year
  Sex: Female
  Weight: 90.9 kg

DRUGS (2)
  1. LAMICTAL [Suspect]
     Indication: EPILEPSY
     Route: 048
  2. SYNTHROID [Suspect]
     Indication: HYPOTHYROIDISM
     Route: 065

REACTIONS (5)
  - Convulsion [Recovered/Resolved]
  - Grand mal convulsion [Recovered/Resolved]
  - Loss of consciousness [Recovered/Resolved]
  - Disorientation [Recovered/Resolved]
  - Somnolence [Recovered/Resolved]
